FAERS Safety Report 17041765 (Version 1)
Quarter: 2019Q4

REPORT INFORMATION
  Report Type: Spontaneous
  Country: GB (occurrence: GB)
  Receive Date: 20191118
  Receipt Date: 20191118
  Transmission Date: 20200122
  Serious: Yes (Disabling)
  Sender: FDA-Public Use
  Company Number: GB-TEVA-2019-GB-1138120

PATIENT
  Age: 28 Year
  Sex: Male
  Weight: 76.2 kg

DRUGS (1)
  1. OLANZAPINE. [Suspect]
     Active Substance: OLANZAPINE
     Indication: DEPRESSION
     Dosage: 20 MG
     Route: 048
     Dates: start: 200011, end: 201703

REACTIONS (2)
  - Suicidal ideation [Recovering/Resolving]
  - Abnormal weight gain [Recovering/Resolving]

NARRATIVE: CASE EVENT DATE: 2001
